FAERS Safety Report 5633474-9 (Version None)
Quarter: 2008Q1

REPORT INFORMATION
  Report Type: 
  Country: None (occurrence: None)
  Receive Date: 20080221
  Receipt Date: 20080212
  Transmission Date: 20080703
  Serious: Yes (Life-Threatening, Hospitalization)
  Sender: FDA-Public Use
  Company Number: JP-PFIZER INC-2007019872

PATIENT
  Age: 65 Year
  Sex: Female

DRUGS (2)
  1. NORVASC [Suspect]
     Dosage: TEXT:UNKNOWN
     Route: 048
  2. DIOVAN [Suspect]

REACTIONS (4)
  - ALTERED STATE OF CONSCIOUSNESS [None]
  - INTENTIONAL OVERDOSE [None]
  - SHOCK [None]
  - SUICIDE ATTEMPT [None]
